FAERS Safety Report 20999193 (Version 2)
Quarter: 2022Q3

REPORT INFORMATION
  Report Type: Report from Study
  Country: BD (occurrence: BD)
  Receive Date: 20220623
  Receipt Date: 20220628
  Transmission Date: 20221026
  Serious: Yes (Death)
  Sender: FDA-Public Use
  Company Number: BD-NOVARTISPH-NVSC2022BD144098

PATIENT
  Age: 85 Year
  Sex: Female
  Weight: 50 kg

DRUGS (2)
  1. ACLASTA [Suspect]
     Active Substance: ZOLEDRONIC ACID
     Indication: Osteoporosis
     Dosage: 5 MG, Q12MO (5MG/100ML)
     Route: 042
     Dates: start: 2018
  2. ACLASTA [Suspect]
     Active Substance: ZOLEDRONIC ACID
     Dosage: 5 MG, Q12MO (5MG/100ML)
     Route: 042
     Dates: start: 202105

REACTIONS (2)
  - Post procedural complication [Fatal]
  - Cholelithiasis [Unknown]

NARRATIVE: CASE EVENT DATE: 20211111
